FAERS Safety Report 13431101 (Version 1)
Quarter: 2017Q2

REPORT INFORMATION
  Report Type: Spontaneous
  Country: US (occurrence: US)
  Receive Date: 20170411
  Receipt Date: 20170411
  Transmission Date: 20170830
  Serious: Yes (Hospitalization)
  Sender: FDA-Public Use
  Company Number: None

PATIENT
  Age: 60 Year
  Sex: Male
  Weight: 181 kg

DRUGS (1)
  1. VANCOMYCIN [Suspect]
     Active Substance: VANCOMYCIN
     Dates: start: 20110411, end: 20110411

REACTIONS (3)
  - Infusion related reaction [None]
  - Urticaria [None]
  - Pruritus generalised [None]

NARRATIVE: CASE EVENT DATE: 20110411
